FAERS Safety Report 6709117-X (Version None)
Quarter: 2010Q2

REPORT INFORMATION
  Report Type: 
  Country: None (occurrence: None)
  Receive Date: 20100504
  Receipt Date: 20100428
  Transmission Date: 20101027
  Serious: Yes (Death, Other)
  Sender: FDA-Public Use
  Company Number: PHHY2010US27117

PATIENT
  Sex: Male
  Weight: 61.2 kg

DRUGS (1)
  1. EXJADE [Suspect]
     Dosage: 500 MG, BID
     Route: 048

REACTIONS (3)
  - APLASTIC ANAEMIA [None]
  - MYELODYSPLASTIC SYNDROME [None]
  - SERUM FERRITIN INCREASED [None]
